FAERS Safety Report 16775453 (Version 2)
Quarter: 2019Q4

REPORT INFORMATION
  Report Type: Spontaneous
  Country: GB (occurrence: FR)
  Receive Date: 20190905
  Receipt Date: 20191217
  Transmission Date: 20200122
  Serious: Yes (Hospitalization)
  Sender: FDA-Public Use
  Company Number: FR-BAYER-2019-161819

PATIENT
  Age: 19 Year
  Sex: Female

DRUGS (8)
  1. ALEVE [Suspect]
     Active Substance: NAPROXEN SODIUM
     Indication: BACK PAIN
     Dosage: 1100 MG, UNK
     Route: 048
     Dates: start: 20190731, end: 20190816
  2. ALPRAZOLAM. [Suspect]
     Active Substance: ALPRAZOLAM
     Indication: BACK PAIN
     Route: 048
  3. LUMIRELAX [METHOCARBAMOL] [Suspect]
     Active Substance: METHOCARBAMOL
     Indication: BACK PAIN
     Route: 048
  4. CODOLIPRANE [Suspect]
     Active Substance: ACETAMINOPHEN\CODEINE PHOSPHATE
     Indication: BACK PAIN
     Route: 048
  5. CODOLIPRANE [Suspect]
     Active Substance: ACETAMINOPHEN\CODEINE PHOSPHATE
     Indication: BACK PAIN
     Route: 048
     Dates: start: 20190816, end: 20190816
  6. ALPRAZOLAM. [Suspect]
     Active Substance: ALPRAZOLAM
     Indication: BACK PAIN
     Route: 048
     Dates: start: 20190731, end: 20190816
  7. PARACETAMOL [Suspect]
     Active Substance: ACETAMINOPHEN
     Indication: BACK PAIN
     Route: 048
     Dates: start: 20190731, end: 20190816
  8. PARACETAMOL [Suspect]
     Active Substance: ACETAMINOPHEN
     Indication: BACK PAIN
     Route: 048

REACTIONS (1)
  - Pancreatitis acute [Recovering/Resolving]

NARRATIVE: CASE EVENT DATE: 20190816
